FAERS Safety Report 7462135-9 (Version None)
Quarter: 2011Q2

REPORT INFORMATION
  Report Type: 
  Country: None (occurrence: None)
  Receive Date: 20110506
  Receipt Date: 20110418
  Transmission Date: 20111010
  Serious: Yes (Death, Other)
  Sender: FDA-Public Use
  Company Number: US-BAYER-200939783NA

PATIENT
  Sex: Female
  Weight: 95.238 kg

DRUGS (4)
  1. TEQUIN [Concomitant]
     Dosage: 400 MG, QD X10 DAYS
     Route: 048
     Dates: start: 20050311
  2. AMITRIPTYLINE [Concomitant]
     Indication: AFFECTIVE DISORDER
     Dosage: 25 MG, QD
     Route: 048
  3. TERAZOSIN HCL [Concomitant]
     Dosage: 2 MG, QD
     Route: 048
  4. TRASYLOL [Suspect]
     Indication: PRODUCT USED FOR UNKNOWN INDICATION
     Route: 042
     Dates: start: 20050408

REACTIONS (12)
  - RENAL IMPAIRMENT [None]
  - EMOTIONAL DISTRESS [None]
  - ANXIETY [None]
  - STRESS [None]
  - INJURY [None]
  - RENAL INJURY [None]
  - PAIN [None]
  - RENAL FAILURE [None]
  - DEATH [None]
  - ANHEDONIA [None]
  - UNEVALUABLE EVENT [None]
  - FEAR [None]
